FAERS Safety Report 9213274 (Version 3)
Quarter: 2014Q1

REPORT INFORMATION
  Report Type: Spontaneous
  Country: US (occurrence: US)
  Receive Date: 20130405
  Receipt Date: 20140327
  Transmission Date: 20141002
  Serious: Yes (Other)
  Sender: FDA-Public Use
  Company Number: US-BAYER-2013-042029

PATIENT
  Age: 27 Year
  Sex: Female
  Weight: 61.22 kg

DRUGS (4)
  1. MIRENA [Suspect]
     Indication: CONTRACEPTION
     Dosage: 20 MCG/24HR, CONT
     Route: 015
     Dates: start: 20051130, end: 20070508
  2. VITAMIN C [Concomitant]
     Dosage: UNK
     Dates: start: 20070506
  3. PRENATAL VITAMINS [VIT C,B5,B12,D2,B3,B6,RETINOL PALMIT,B2,B1 MONO [Concomitant]
     Dosage: UNK UNK, QD
     Dates: start: 20070508
  4. IBUPROFEN [Concomitant]
     Dosage: 600 MG, UNK

REACTIONS (13)
  - Uterine perforation [None]
  - Abdominal pain lower [None]
  - Genital haemorrhage [None]
  - Pregnancy with contraceptive device [None]
  - Drug ineffective [None]
  - Abortion spontaneous [None]
  - Injury [None]
  - Pain [None]
  - Emotional distress [Not Recovered/Not Resolved]
  - Scar [None]
  - Depression [Not Recovered/Not Resolved]
  - Anxiety [Not Recovered/Not Resolved]
  - Fear of disease [Not Recovered/Not Resolved]
